FAERS Safety Report 8334008-0 (Version None)
Quarter: 2012Q2

REPORT INFORMATION
  Report Type: 
  Country: None (occurrence: None)
  Receive Date: 20120503
  Receipt Date: 20120426
  Transmission Date: 20120825
  Serious: Yes (Other)
  Sender: FDA-Public Use
  Company Number: ES-ROCHE-1063617

PATIENT
  Age: 74 Year
  Sex: Female

DRUGS (3)
  1. SIMVASTATIN [Concomitant]
     Indication: HYPERCHOLESTEROLAEMIA
     Route: 048
     Dates: start: 20000101
  2. BONIVA [Suspect]
     Indication: PRODUCT USED FOR UNKNOWN INDICATION
     Dates: start: 20110101, end: 20110308
  3. IRBESARTAN [Concomitant]
     Indication: HYPERTENSION
     Dosage: IRBESARTAN KERN
     Route: 048
     Dates: start: 20050101

REACTIONS (2)
  - SYNCOPE [None]
  - LOSS OF CONSCIOUSNESS [None]
